FAERS Safety Report 9358864 (Version 1)
Quarter: 2013Q2

REPORT INFORMATION
  Report Type: Spontaneous
  Country: US (occurrence: US)
  Receive Date: 20130620
  Receipt Date: 20130620
  Transmission Date: 20140414
  Serious: Yes (Other)
  Sender: FDA-Public Use
  Company Number: US-PURDUE-USA-2013-0103668

PATIENT
  Sex: Female

DRUGS (2)
  1. OXYCONTIN TABLETS [Suspect]
     Indication: PAIN
     Dosage: 40 MG, UNK
     Route: 048
     Dates: start: 2005, end: 2011
  2. OXYCONTIN TABLETS [Suspect]
     Dosage: 60 MG, BID
     Route: 048
     Dates: start: 2011, end: 201211

REACTIONS (5)
  - Breast cancer [Unknown]
  - Hepatitis C [Unknown]
  - Aortic stenosis [Unknown]
  - Anaemia [Unknown]
  - Fibromyalgia [Unknown]
